FAERS Safety Report 5689792-1 (Version None)
Quarter: 2008Q1

REPORT INFORMATION
  Report Type: 
  Country: None (occurrence: None)
  Receive Date: 20080328
  Receipt Date: 20080319
  Transmission Date: 20080703
  Serious: Yes (Other)
  Sender: FDA-Public Use
  Company Number: 2008AP000699

PATIENT
  Sex: Female

DRUGS (4)
  1. PAROXETINE HCL [Suspect]
     Dosage: PO
     Route: 048
     Dates: end: 20010901
  2. VENLAFAXINE HCL [Concomitant]
  3. ENDOCRINE THERAPY   (ENDOCRINE THERAPY) [Concomitant]
  4. LORAZEPAM [Concomitant]

REACTIONS (5)
  - DRUG WITHDRAWAL SYNDROME [None]
  - MANIA [None]
  - MENTAL DISORDER [None]
  - NAUSEA [None]
  - PARAESTHESIA [None]
